FAERS Safety Report 23994003 (Version 1)
Quarter: 2024Q2

REPORT INFORMATION
  Report Type: Report from Study
  Country: US (occurrence: US)
  Receive Date: 20240620
  Receipt Date: 20240620
  Transmission Date: 20240716
  Serious: Yes (Other)
  Sender: FDA-Public Use
  Company Number: US-MYLANLABS-2024M1054652

PATIENT
  Sex: Female

DRUGS (1)
  1. GLATIRAMER ACETATE [Suspect]
     Active Substance: GLATIRAMER ACETATE
     Indication: Multiple sclerosis
     Dosage: 40 MILLIGRAM 3X/WK (THRICE WEEKLY)
     Route: 065

REACTIONS (4)
  - Multiple sclerosis [Unknown]
  - Headache [Unknown]
  - Tremor [Unknown]
  - Drug ineffective [Unknown]
